FAERS Safety Report 8101835-4 (Version None)
Quarter: 2012Q1

REPORT INFORMATION
  Report Type: 
  Country: None (occurrence: None)
  Receive Date: 20120131
  Receipt Date: 20120126
  Transmission Date: 20120608
  Serious: Yes (Death)
  Sender: FDA-Public Use
  Company Number: PHEH2012US002381

PATIENT
  Sex: Male

DRUGS (3)
  1. AFINITOR [Suspect]
  2. PENICILLIN G [Suspect]
  3. ZOMETA [Suspect]

REACTIONS (1)
  - DEATH [None]
